FAERS Safety Report 23914578 (Version 1)
Quarter: 2024Q2

REPORT INFORMATION
  Report Type: Spontaneous
  Country: PT (occurrence: PT)
  Receive Date: 20240529
  Receipt Date: 20240529
  Transmission Date: 20240716
  Serious: Yes (Other)
  Sender: FDA-Public Use
  Company Number: PT-SUN PHARMACEUTICAL INDUSTRIES LTD-2024R1-448057

PATIENT
  Age: 67 Year
  Sex: Female

DRUGS (1)
  1. ALBUTEROL [Suspect]
     Active Substance: ALBUTEROL
     Indication: COVID-19 pneumonia
     Dosage: UNK

REACTIONS (1)
  - Lactic acidosis [Recovering/Resolving]
